FAERS Safety Report 7963867-6 (Version None)
Quarter: 2011Q4

REPORT INFORMATION
  Report Type: 
  Country: None (occurrence: None)
  Receive Date: 20111208
  Receipt Date: 20111202
  Transmission Date: 20120403
  Serious: No
  Sender: FDA-Public Use
  Company Number: US-BAYER-2011-116399

PATIENT
  Sex: Female

DRUGS (1)
  1. YASMIN [Suspect]

REACTIONS (4)
  - DEPRESSED MOOD [None]
  - CRYING [None]
  - HEART RATE INCREASED [None]
  - PANIC ATTACK [None]
